FAERS Safety Report 17853082 (Version 2)
Quarter: 2020Q2

REPORT INFORMATION
  Report Type: Report from Study
  Country: US (occurrence: US)
  Receive Date: 20200603
  Receipt Date: 20200609
  Transmission Date: 20200714
  Serious: No
  Sender: FDA-Public Use
  Company Number: NVSC2020US151630

PATIENT
  Sex: Female

DRUGS (1)
  1. ENTRESTO [Suspect]
     Active Substance: SACUBITRIL\VALSARTAN
     Indication: CARDIAC FAILURE CONGESTIVE
     Dosage: 100 MG, BID
     Route: 048

REACTIONS (5)
  - Renal disorder [Unknown]
  - Memory impairment [Unknown]
  - Hypotension [Recovering/Resolving]
  - Fluid retention [Recovered/Resolved]
  - Dizziness [Unknown]
